FAERS Safety Report 10072488 (Version 1)
Quarter: 2014Q2

REPORT INFORMATION
  Report Type: Spontaneous
  Country: US (occurrence: None)
  Receive Date: 20140409
  Receipt Date: 20140409
  Transmission Date: 20141212
  Serious: Yes (Other)
  Sender: FDA-Public Use
  Company Number: UCM201403-000036

PATIENT
  Age: 46 Year
  Sex: Male

DRUGS (3)
  1. HYDROCHLOROTHIAZIDE (HYDROCHLOROTHIAZIDE) (HYDROCHLOROTHIAZIDE) [Suspect]
  2. LISINOPRIL (LISINOPRIL) (LISINOPRIL) [Suspect]
  3. CELECOXIB [Suspect]
     Indication: ANALGESIC THERAPY

REACTIONS (5)
  - Renal failure acute [None]
  - Metabolic acidosis [None]
  - Hypotension [None]
  - Anaemia [None]
  - Blood creatinine increased [None]
